FAERS Safety Report 10390173 (Version 4)
Quarter: 2015Q1

REPORT INFORMATION
  Report Type: Spontaneous
  Country: NP (occurrence: NP)
  Receive Date: 20140818
  Receipt Date: 20150108
  Transmission Date: 20150720
  Serious: Yes (Death, Other)
  Sender: FDA-Public Use
  Company Number: NP-PFIZER INC-2014225901

PATIENT
  Age: 9 Year
  Sex: Female

DRUGS (7)
  1. ATGAM [Suspect]
     Active Substance: EQUINE THYMOCYTE IMMUNE GLOBULIN
     Indication: APLASTIC ANAEMIA
     Dosage: 40 MG/KG, 1X/DAY
     Route: 042
     Dates: start: 20130102
  2. AVIL [Suspect]
     Active Substance: PHENIRAMINE
     Indication: APLASTIC ANAEMIA
     Dosage: 25 MG, UNK
  3. PIPERACILLIN [Suspect]
     Active Substance: PIPERACILLIN
  4. PARACETAMOL [Suspect]
     Active Substance: ACETAMINOPHEN
     Indication: APLASTIC ANAEMIA
     Dosage: 500 MG, UNK
     Route: 048
  5. PREDNISOLONE. [Suspect]
     Active Substance: PREDNISOLONE
     Indication: APLASTIC ANAEMIA
     Dosage: 1 MG/KG, UNK
     Route: 048
     Dates: start: 20130106, end: 20130108
  6. CYCLOSPORINE. [Suspect]
     Active Substance: CYCLOSPORINE
     Indication: APLASTIC ANAEMIA
     Dosage: 5 MG/KG IN DIVIDED DOSE
  7. DEXAMETHASONE. [Suspect]
     Active Substance: DEXAMETHASONE
     Indication: APLASTIC ANAEMIA
     Dosage: 6 MG/M2, 1X/DAY
     Route: 042

REACTIONS (3)
  - Sepsis [Fatal]
  - Septic shock [Unknown]
  - Acute respiratory distress syndrome [Unknown]

NARRATIVE: CASE EVENT DATE: 20130105
